FAERS Safety Report 13930265 (Version 1)
Quarter: 2017Q3

REPORT INFORMATION
  Report Type: Spontaneous
  Country: TR (occurrence: TR)
  Receive Date: 20170901
  Receipt Date: 20170901
  Transmission Date: 20171127
  Serious: Yes (Hospitalization)
  Sender: FDA-Public Use
  Company Number: TR-SA-2017SA158308

PATIENT
  Age: 1 Month
  Sex: Female
  Weight: 4.69 kg

DRUGS (3)
  1. APIDRA [Suspect]
     Active Substance: INSULIN GLULISINE
     Dosage: 3*6
     Route: 064
     Dates: start: 20170620, end: 20170807
  2. CLEXANE [Suspect]
     Active Substance: ENOXAPARIN SODIUM
     Dosage: 1*1
     Route: 064
     Dates: start: 20170620, end: 20170807
  3. LANTUS [Suspect]
     Active Substance: INSULIN GLARGINE
     Dosage: 1*10
     Route: 064
     Dates: start: 20170620, end: 20170807

REACTIONS (2)
  - Foetal exposure during pregnancy [Unknown]
  - Blood glucose decreased [Recovered/Resolved]

NARRATIVE: CASE EVENT DATE: 20170726
